FAERS Safety Report 16136738 (Version 2)
Quarter: 2019Q2

REPORT INFORMATION
  Report Type: Report from Study
  Country: US (occurrence: US)
  Receive Date: 20190329
  Receipt Date: 20190505
  Transmission Date: 20190711
  Serious: No
  Sender: FDA-Public Use
  Company Number: PHEH2019US013985

PATIENT
  Age: 40 Year
  Sex: Female

DRUGS (3)
  1. DALFAMPRIDINE. [Concomitant]
     Active Substance: DALFAMPRIDINE
     Indication: PRODUCT USED FOR UNKNOWN INDICATION
     Route: 065
  2. GILENYA [Suspect]
     Active Substance: FINGOLIMOD HYDROCHLORIDE
     Indication: MULTIPLE SCLEROSIS
     Dosage: 0.5 MG, QD
     Route: 048
     Dates: start: 201805
  3. GILENYA [Suspect]
     Active Substance: FINGOLIMOD HYDROCHLORIDE
     Dosage: 0.5 MG, QD
     Route: 048
     Dates: start: 201903

REACTIONS (4)
  - Dizziness [Unknown]
  - Paraesthesia [Unknown]
  - Limb discomfort [Unknown]
  - Headache [Unknown]

NARRATIVE: CASE EVENT DATE: 20190327
